FAERS Safety Report 9753850 (Version 1)
Quarter: 2013Q4

REPORT INFORMATION
  Report Type: Spontaneous
  Country: US (occurrence: US)
  Receive Date: 20131213
  Receipt Date: 20131213
  Transmission Date: 20140711
  Serious: No
  Sender: FDA-Public Use
  Company Number: US-GILEAD-2010-0027652

PATIENT
  Sex: Female
  Weight: 64.41 kg

DRUGS (12)
  1. LETAIRIS [Suspect]
     Indication: PULMONARY ARTERIAL HYPERTENSION
     Route: 048
     Dates: start: 20090505
  2. TYLENOL [Concomitant]
  3. NORVASC [Concomitant]
  4. PREMARIN [Concomitant]
  5. CIPRO [Concomitant]
  6. CELEBREX [Concomitant]
  7. REVATIO [Concomitant]
  8. GABAPENTIN [Concomitant]
  9. HYDROXYCHLOROQUINE [Concomitant]
  10. MULTIVITAMIN [Concomitant]
  11. OMEPRAZOLE [Concomitant]
  12. ASPIRIN [Concomitant]

REACTIONS (1)
  - Fatigue [Unknown]
